FAERS Safety Report 5498420-X (Version None)
Quarter: 2007Q4

REPORT INFORMATION
  Report Type: 
  Country: None (occurrence: None)
  Receive Date: 20071024
  Receipt Date: 20071009
  Transmission Date: 20080405
  Serious: Yes (Death, Life-Threatening, Hospitalization, Disabling)
  Sender: FDA-Public Use
  Company Number: ABMIH-07-0855

PATIENT
  Age: 55 Year
  Sex: Female
  Weight: 52 kg

DRUGS (8)
  1. ABRAXANE [Suspect]
     Indication: BREAST CANCER METASTATIC
     Dosage: (150 MG), INTRAVENOUS
     Route: 042
     Dates: start: 20070425, end: 20070523
  2. AVASTIN [Concomitant]
  3. MVI (MULTIVITAMINS) [Concomitant]
  4. PRILOSEC [Concomitant]
  5. HERBS [Concomitant]
  6. CALCIUM + VITAMIN D (CALCIUM WITH VITAMIN D) [Concomitant]
  7. ASCORBIC ACID [Concomitant]
  8. OXYCODONE HCL [Concomitant]

REACTIONS (1)
  - INAPPROPRIATE ANTIDIURETIC HORMONE SECRETION [None]
